FAERS Safety Report 6716182-2 (Version None)
Quarter: 2010Q2

REPORT INFORMATION
  Report Type: 
  Country: None (occurrence: None)
  Receive Date: 20100507
  Receipt Date: 20100427
  Transmission Date: 20101027
  Serious: Yes (Other)
  Sender: FDA-Public Use
  Company Number: GB-PFIZER INC-2009174228

PATIENT

DRUGS (4)
  1. CHAMPIX [Suspect]
     Indication: SMOKING CESSATION THERAPY
     Dosage: 0.5 MG, 1X/DAY
     Route: 064
     Dates: start: 20081022, end: 20090206
  2. LYMECYCLINE [Concomitant]
     Indication: ACNE
     Dosage: UNK
     Dates: start: 20080106, end: 20090211
  3. ADAPALENE [Concomitant]
     Dosage: UNK
     Dates: start: 20090106, end: 20090211
  4. ISOTRETINOIN [Concomitant]
     Dosage: UNK
     Dates: end: 20090211

REACTIONS (2)
  - DRUG EXPOSURE DURING PREGNANCY [None]
  - FOETAL HEART RATE ABNORMAL [None]
